FAERS Safety Report 5072662-X (Version None)
Quarter: 2006Q3

REPORT INFORMATION
  Report Type: 
  Country: None (occurrence: None)
  Receive Date: 20060807
  Receipt Date: 20060802
  Transmission Date: 20061208
  Serious: Yes (Hospitalization)
  Sender: FDA-Public Use
  Company Number: IT-GLAXOSMITHKLINE-B0433265A

PATIENT
  Age: 36 Year
  Sex: Male

DRUGS (1)
  1. ZIAGEN [Suspect]
     Indication: HIV INFECTION
     Route: 048

REACTIONS (4)
  - CHEST PAIN [None]
  - PRURITUS [None]
  - PYREXIA [None]
  - RASH [None]
